FAERS Safety Report 14805236 (Version 1)
Quarter: 2018Q2

REPORT INFORMATION
  Report Type: Spontaneous
  Country: US (occurrence: US)
  Receive Date: 20180425
  Receipt Date: 20180425
  Transmission Date: 20180711
  Serious: No
  Sender: FDA-Public Use
  Company Number: US-BEH-2018089946

PATIENT
  Age: 33 Year
  Sex: Female

DRUGS (12)
  1. HAEGARDA [Suspect]
     Active Substance: HUMAN C1-ESTERASE INHIBITOR
     Indication: HEREDITARY ANGIOEDEMA
     Dosage: 6000 IU, BIW
     Route: 058
     Dates: start: 20171223
  2. BERINERT [Concomitant]
     Active Substance: HUMAN C1-ESTERASE INHIBITOR
     Indication: PRODUCT USED FOR UNKNOWN INDICATION
     Dosage: 500 IU, UNK, INJ
     Route: 065
     Dates: start: 20171221
  3. ALPRAZOLAM. [Concomitant]
     Active Substance: ALPRAZOLAM
     Dosage: 0.5 MG, UNK, TAB
     Route: 065
     Dates: start: 20171221
  4. B COMPLEX                          /00212701/ [Concomitant]
     Active Substance: NIACINAMIDE\PYRIDOXINE\RIBOFLAVIN\THIAMINE
     Dosage: UNK, CAP
     Route: 065
     Dates: start: 20171221
  5. CINRYZE [Concomitant]
     Active Substance: HUMAN C1-ESTERASE INHIBITOR
     Dosage: 600 IU, UNK
     Route: 065
     Dates: start: 20150107
  6. PROBIOTIC                          /06395501/ [Concomitant]
     Active Substance: BIFIDOBACTERIUM ANIMALIS LACTIS
     Dosage: UNK, CAP
     Route: 065
     Dates: start: 20171221
  7. ZOFRAN [Concomitant]
     Active Substance: ONDANSETRON HYDROCHLORIDE
     Dosage: 4 MG, UNK, TAB
     Route: 065
     Dates: start: 20171221
  8. HAEGARDA [Suspect]
     Active Substance: HUMAN C1-ESTERASE INHIBITOR
     Indication: ENZYME ABNORMALITY
  9. HAEGARDA [Suspect]
     Active Substance: HUMAN C1-ESTERASE INHIBITOR
     Indication: IMMUNODEFICIENCY
  10. LEXAPRO [Concomitant]
     Active Substance: ESCITALOPRAM OXALATE
     Dosage: 5 MG, UNK, TAB
     Route: 065
     Dates: start: 20160516
  11. HAEGARDA [Suspect]
     Active Substance: HUMAN C1-ESTERASE INHIBITOR
     Indication: PROPHYLAXIS
  12. DANAZOL. [Concomitant]
     Active Substance: DANAZOL
     Dosage: 200 MG, UNK, CAP
     Route: 065
     Dates: start: 20160711

REACTIONS (1)
  - Hypersensitivity [Unknown]
